FAERS Safety Report 20637556 (Version 1)
Quarter: 2022Q1

REPORT INFORMATION
  Report Type: Report from Study
  Country: IT (occurrence: IT)
  Receive Date: 20220325
  Receipt Date: 20220325
  Transmission Date: 20220423
  Serious: Yes (Hospitalization)
  Sender: FDA-Public Use
  Company Number: None

PATIENT
  Age: 16 Year
  Sex: Male

DRUGS (2)
  1. QUETIAPINE FUMARATE [Suspect]
     Active Substance: QUETIAPINE FUMARATE
     Indication: Mental disorder
     Dosage: 250MG
     Route: 048
     Dates: start: 20220124
  2. LITHIUM [Concomitant]
     Active Substance: LITHIUM
     Indication: Borderline personality disorder
     Dosage: 83MG
     Route: 048
     Dates: start: 20200101

REACTIONS (3)
  - Sopor [Recovering/Resolving]
  - Drug abuse [Recovering/Resolving]
  - Clonus [Recovering/Resolving]

NARRATIVE: CASE EVENT DATE: 20220124
